FAERS Safety Report 15112946 (Version 1)
Quarter: 2018Q3

REPORT INFORMATION
  Report Type: Spontaneous
  Country: US (occurrence: US)
  Receive Date: 20180705
  Receipt Date: 20180705
  Transmission Date: 20181010
  Serious: No
  Sender: FDA-Public Use
  Company Number: US-TEVA-2018-US-920703

PATIENT
  Sex: Male

DRUGS (1)
  1. MICONAZOLE 2% [Suspect]
     Active Substance: MICONAZOLE
     Indication: TINEA CRURIS
     Route: 065

REACTIONS (1)
  - Burning sensation [Unknown]
